FAERS Safety Report 16256877 (Version 1)
Quarter: 2019Q2

REPORT INFORMATION
  Report Type: Spontaneous
  Country: US (occurrence: US)
  Receive Date: 20190430
  Receipt Date: 20190430
  Transmission Date: 20190711
  Serious: No
  Sender: FDA-Public Use
  Company Number: US-GLAXOSMITHKLINE-US2019075913

PATIENT
  Age: 79 Year
  Sex: Female

DRUGS (2)
  1. PEROXYL [Suspect]
     Active Substance: HYDROGEN PEROXIDE
     Indication: GINGIVAL PAIN
     Dosage: UNK
     Route: 065
  2. TRELEGY ELLIPTA [Suspect]
     Active Substance: FLUTICASONE FUROATE\UMECLIDINIUM BROMIDE\VILANTEROL TRIFENATATE
     Indication: PRODUCT USED FOR UNKNOWN INDICATION
     Dosage: UNK
     Route: 055
     Dates: start: 2018

REACTIONS (1)
  - Coating in mouth [Recovering/Resolving]

NARRATIVE: CASE EVENT DATE: 201902
